FAERS Safety Report 6603879-8 (Version None)
Quarter: 2010Q1

REPORT INFORMATION
  Report Type: 
  Country: None (occurrence: None)
  Receive Date: 20100226
  Receipt Date: 20090424
  Transmission Date: 20100710
  Serious: Yes (Other)
  Sender: FDA-Public Use
  Company Number: A0771390A

PATIENT
  Age: 15 Year
  Sex: Male

DRUGS (3)
  1. LAMICTAL CD [Suspect]
     Dosage: 750MG TWICE PER DAY
     Route: 048
  2. RISPERDAL [Concomitant]
     Dosage: 1.5ML TWICE PER DAY
  3. XANAX [Concomitant]
     Dosage: .5MG THREE TIMES PER DAY

REACTIONS (3)
  - CONVULSION [None]
  - DRUG INEFFECTIVE [None]
  - PRODUCT QUALITY ISSUE [None]
